FAERS Safety Report 11350576 (Version 4)
Quarter: 2016Q2

REPORT INFORMATION
  Report Type: Spontaneous
  Country: US (occurrence: US)
  Receive Date: 20150807
  Receipt Date: 20160602
  Transmission Date: 20160815
  Serious: Yes (Hospitalization)
  Sender: FDA-Public Use
  Company Number: US-BAYER-2015-394514

PATIENT
  Age: 23 Year
  Sex: Female
  Weight: 67.12 kg

DRUGS (1)
  1. MIRENA [Suspect]
     Active Substance: LEVONORGESTREL
     Indication: CONTRACEPTION
     Dosage: 20 MCG/24HR, CONT
     Route: 015
     Dates: start: 20130409, end: 20150728

REACTIONS (4)
  - Adnexa uteri pain [None]
  - Embedded device [None]
  - Ovarian cyst [None]
  - Device issue [None]

NARRATIVE: CASE EVENT DATE: 2015
